FAERS Safety Report 8590463-2 (Version None)
Quarter: 2012Q3

REPORT INFORMATION
  Report Type: 
  Country: None (occurrence: None)
  Receive Date: 20120813
  Receipt Date: 20120806
  Transmission Date: 20120928
  Serious: Yes (Other)
  Sender: FDA-Public Use
  Company Number: US-PFIZER INC-2012083299

PATIENT
  Age: 24 Year
  Sex: Male
  Weight: 158.73 kg

DRUGS (8)
  1. NEURONTIN [Suspect]
     Indication: NEUROPATHY PERIPHERAL
     Dosage: 600 MG
     Route: 048
     Dates: end: 20120228
  2. FLEXERIL [Concomitant]
     Dosage: UNK
  3. NEURONTIN [Suspect]
     Dosage: UNK
     Route: 048
  4. CELLCEPT [Suspect]
     Indication: NEUROPATHY PERIPHERAL
     Dosage: 500 MG, 2X/DAY
     Route: 048
     Dates: end: 20120228
  5. TRILEPTAL [Concomitant]
     Dosage: 600 MG, UNK
  6. TRAMADOL [Concomitant]
     Dosage: UNK
  7. CELEBREX [Suspect]
     Indication: ARTHRITIS
     Dosage: UNK
  8. IBUPROFEN [Concomitant]
     Dosage: UNK

REACTIONS (9)
  - INSOMNIA [None]
  - SLEEP DISORDER [None]
  - DYSGRAPHIA [None]
  - NEUROPATHY PERIPHERAL [None]
  - DYSSTASIA [None]
  - IMPAIRED WORK ABILITY [None]
  - INTERVERTEBRAL DISC PROTRUSION [None]
  - CONVULSION [None]
  - PAIN [None]
